FAERS Safety Report 6963445-1 (Version None)
Quarter: 2010Q3

REPORT INFORMATION
  Report Type: 
  Country: None (occurrence: None)
  Receive Date: 20100902
  Receipt Date: 20100831
  Transmission Date: 20110219
  Serious: Yes (Hospitalization)
  Sender: FDA-Public Use
  Company Number: B0671036A

PATIENT
  Sex: Male

DRUGS (2)
  1. AUGMENTIN '125' [Suspect]
     Indication: BRONCHIAL INJURY
     Dosage: 1G THREE TIMES PER DAY
     Route: 048
     Dates: start: 20100709, end: 20100725
  2. CIFLOX [Suspect]
     Indication: BRONCHIAL INJURY
     Dosage: 500MG TWICE PER DAY
     Route: 048
     Dates: start: 20100709, end: 20100725

REACTIONS (3)
  - GENERAL PHYSICAL HEALTH DETERIORATION [None]
  - HEPATITIS CHOLESTATIC [None]
  - LIVER FUNCTION TEST ABNORMAL [None]
